FAERS Safety Report 13964380 (Version 1)
Quarter: 2017Q3

REPORT INFORMATION
  Report Type: Spontaneous
  Country: US (occurrence: US)
  Receive Date: 20170913
  Receipt Date: 20170913
  Transmission Date: 20171128
  Serious: No
  Sender: FDA-Public Use
  Company Number: None

PATIENT
  Age: 8 Year
  Sex: Male
  Weight: 42.75 kg

DRUGS (2)
  1. AMOXICILLIN. [Suspect]
     Active Substance: AMOXICILLIN
     Indication: GINGIVITIS
     Dosage: ?          QUANTITY:200 TEASPOON(S);?
     Route: 048
     Dates: start: 20170908, end: 20170913
  2. AMOXICILLIN. [Suspect]
     Active Substance: AMOXICILLIN
     Indication: ORAL INFECTION
     Dosage: ?          QUANTITY:200 TEASPOON(S);?
     Route: 048
     Dates: start: 20170908, end: 20170913

REACTIONS (5)
  - Rash [None]
  - Therapy cessation [None]
  - Abnormal behaviour [None]
  - Affective disorder [None]
  - Emotional disorder [None]

NARRATIVE: CASE EVENT DATE: 20170913
